FAERS Safety Report 5782164-0 (Version None)
Quarter: 2008Q2

REPORT INFORMATION
  Report Type: 
  Country: None (occurrence: None)
  Receive Date: 20080623
  Receipt Date: 20080617
  Transmission Date: 20081010
  Serious: Yes (Death)
  Sender: FDA-Public Use
  Company Number: US-ASTRAZENECA-2008UW11712

PATIENT
  Age: 26075 Day
  Sex: Female

DRUGS (2)
  1. SEROQUEL [Suspect]
     Indication: ANXIETY
     Route: 048
     Dates: start: 20020413, end: 20030516
  2. SEROQUEL [Suspect]
     Indication: DEPRESSION
     Route: 048
     Dates: start: 20020413, end: 20030516

REACTIONS (2)
  - DEATH [None]
  - DIABETES MELLITUS [None]
